FAERS Safety Report 16417313 (Version 3)
Quarter: 2019Q2

REPORT INFORMATION
  Report Type: Spontaneous
  Country: US (occurrence: US)
  Receive Date: 20190611
  Receipt Date: 20190625
  Transmission Date: 20190711
  Serious: Yes (Other)
  Sender: FDA-Public Use
  Company Number: US-ASTRAZENECA-2018SF26578

PATIENT
  Age: 699 Month
  Sex: Male
  Weight: 66.7 kg

DRUGS (30)
  1. NEXIUM 24HR [Suspect]
     Active Substance: ESOMEPRAZOLE MAGNESIUM
     Route: 048
     Dates: start: 200301, end: 201504
  2. DEMADEX [Concomitant]
     Active Substance: TORSEMIDE
  3. AMBIEN [Concomitant]
     Active Substance: ZOLPIDEM TARTRATE
  4. CALTRATE [Concomitant]
     Active Substance: CALCIUM CARBONATE
  5. ACETAMINOPHEN. [Concomitant]
     Active Substance: ACETAMINOPHEN
  6. PRILOSEC OTC [Suspect]
     Active Substance: OMEPRAZOLE MAGNESIUM
     Route: 048
     Dates: start: 200301, end: 201504
  7. LIPITOR [Concomitant]
     Active Substance: ATORVASTATIN CALCIUM
  8. RENVELA [Concomitant]
     Active Substance: SEVELAMER CARBONATE
  9. IPRATROPIUM [Concomitant]
     Active Substance: IPRATROPIUM
  10. CARVEDILOL. [Concomitant]
     Active Substance: CARVEDILOL
  11. NEXIUM 24HR [Suspect]
     Active Substance: ESOMEPRAZOLE MAGNESIUM
     Route: 048
     Dates: start: 20140401, end: 20150401
  12. PRILOSEC OTC [Suspect]
     Active Substance: OMEPRAZOLE MAGNESIUM
     Route: 048
     Dates: start: 20030101, end: 20040101
  13. MIRTAZAPINE. [Concomitant]
     Active Substance: MIRTAZAPINE
  14. PRILOSEC [Suspect]
     Active Substance: OMEPRAZOLE MAGNESIUM
     Route: 048
     Dates: start: 200301, end: 201504
  15. OXYCODONE [Concomitant]
     Active Substance: OXYCODONE
  16. LISINOPRIL. [Concomitant]
     Active Substance: LISINOPRIL
  17. VALIUM [Concomitant]
     Active Substance: DIAZEPAM
  18. CARVEDILOL. [Concomitant]
     Active Substance: CARVEDILOL
  19. FUROSEMIDE. [Concomitant]
     Active Substance: FUROSEMIDE
  20. EPOGEN [Concomitant]
     Active Substance: ERYTHROPOIETIN
  21. ROCALTROL [Concomitant]
     Active Substance: CALCITRIOL
  22. SODIUM BICARBONATE. [Concomitant]
     Active Substance: SODIUM BICARBONATE
  23. FLOMAX [Concomitant]
     Active Substance: TAMSULOSIN HYDROCHLORIDE
  24. HYDRALAZINE [Concomitant]
     Active Substance: HYDRALAZINE HYDROCHLORIDE
  25. ONDANSETRON [Concomitant]
     Active Substance: ONDANSETRON
  26. METOPROLOL. [Concomitant]
     Active Substance: METOPROLOL
  27. VENOFER [Concomitant]
     Active Substance: IRON SUCROSE
  28. HEPARIN [Concomitant]
     Active Substance: HEPARIN SODIUM
  29. NEXIUM [Suspect]
     Active Substance: ESOMEPRAZOLE MAGNESIUM
     Route: 048
     Dates: start: 200301, end: 201504
  30. HECTOROL [Concomitant]
     Active Substance: DOXERCALCIFEROL

REACTIONS (8)
  - Acute kidney injury [Unknown]
  - Tubulointerstitial nephritis [Unknown]
  - Renal injury [Unknown]
  - Dyspepsia [Unknown]
  - Chronic kidney disease [Unknown]
  - Nephrogenic anaemia [Unknown]
  - End stage renal disease [Unknown]
  - Hyperparathyroidism secondary [Unknown]

NARRATIVE: CASE EVENT DATE: 200808
